FAERS Safety Report 9644896 (Version 2)
Quarter: 2013Q4

REPORT INFORMATION
  Report Type: Report from Study
  Country: PK (occurrence: PK)
  Receive Date: 20131025
  Receipt Date: 20131030
  Transmission Date: 20140711
  Serious: Yes (Death)
  Sender: FDA-Public Use
  Company Number: PHHY2013PK120447

PATIENT
  Age: 64 Year
  Sex: Female
  Weight: 68 kg

DRUGS (1)
  1. AFINITOR [Suspect]
     Indication: BREAST CANCER
     Dosage: 10 MG, QD
     Route: 048
     Dates: start: 20130413, end: 20130706

REACTIONS (1)
  - Death [Fatal]
